FAERS Safety Report 16845913 (Version 1)
Quarter: 2019Q3

REPORT INFORMATION
  Report Type: Spontaneous
  Country: US (occurrence: US)
  Receive Date: 20190924
  Receipt Date: 20190924
  Transmission Date: 20191005
  Serious: No
  Sender: FDA-Public Use
  Company Number: US-ASSERTIO THERAPEUTICS, INC.-US-2019DEP000629

PATIENT
  Sex: Female

DRUGS (1)
  1. GRALISE [Suspect]
     Active Substance: GABAPENTIN
     Indication: LUMBAR RADICULOPATHY
     Dosage: 600 MG, QD WITH EVENING MEAL
     Route: 048

REACTIONS (4)
  - Dermatitis allergic [Unknown]
  - Rash [Unknown]
  - Product use in unapproved indication [Unknown]
  - Drug titration error [Unknown]
